FAERS Safety Report 12483383 (Version 2)
Quarter: 2016Q3

REPORT INFORMATION
  Report Type: Spontaneous
  Country: DE (occurrence: DE)
  Receive Date: 20160621
  Receipt Date: 20160921
  Transmission Date: 20161109
  Serious: Yes (Hospitalization, Other)
  Sender: FDA-Public Use
  Company Number: DE-ROCHE-1778081

PATIENT
  Age: 73 Year
  Sex: Female

DRUGS (4)
  1. VIGANTOLETTEN [Concomitant]
     Active Substance: CHOLECALCIFEROL
     Route: 065
  2. CORTISONE [Concomitant]
     Active Substance: CORTISONE\HYDROCORTISONE
  3. FOLSAURE [Concomitant]
     Active Substance: FOLIC ACID
     Indication: FOLATE DEFICIENCY
     Route: 065
  4. MABTHERA [Suspect]
     Active Substance: RITUXIMAB
     Indication: CREST SYNDROME
     Dosage: 500-1000 MG (NOT CONFIRM)
     Route: 042
     Dates: end: 20160504

REACTIONS (5)
  - Hemiparesis [Recovering/Resolving]
  - Off label use [Unknown]
  - Cerebral infarction [Recovering/Resolving]
  - Cerebrovascular accident [Recovering/Resolving]
  - Weight decreased [Recovering/Resolving]

NARRATIVE: CASE EVENT DATE: 201604
